FAERS Safety Report 6624923-8 (Version None)
Quarter: 2010Q1

REPORT INFORMATION
  Report Type: 
  Country: None (occurrence: None)
  Receive Date: 20100310
  Receipt Date: 20090916
  Transmission Date: 20100710
  Serious: No
  Sender: FDA-Public Use
  Company Number: US-BIOGENIDEC-2009BI029581

PATIENT
  Age: 51 Year
  Sex: Female

DRUGS (2)
  1. AVONEX [Suspect]
     Indication: MULTIPLE SCLEROSIS
     Route: 030
     Dates: start: 20090811, end: 20090902
  2. AVONEX [Suspect]
     Route: 030
     Dates: start: 20090909

REACTIONS (3)
  - NAUSEA [None]
  - SKIN DISCOLOURATION [None]
  - TREMOR [None]
